FAERS Safety Report 9690352 (Version 1)
Quarter: 2013Q4

REPORT INFORMATION
  Report Type: Spontaneous
  Country: US (occurrence: None)
  Receive Date: 20131114
  Receipt Date: 20131114
  Transmission Date: 20140711
  Serious: Yes (Other)
  Sender: FDA-Public Use
  Company Number: None

PATIENT
  Sex: Female

DRUGS (1)
  1. AFINITOR [Suspect]
     Route: 048
     Dates: start: 20131003, end: 20131112

REACTIONS (5)
  - Blood glucose decreased [None]
  - Abdominal discomfort [None]
  - Contusion [None]
  - Dyspnoea [None]
  - Chest pain [None]
